FAERS Safety Report 25110275 (Version 1)
Quarter: 2025Q1

REPORT INFORMATION
  Report Type: Spontaneous
  Country: US (occurrence: US)
  Receive Date: 20250324
  Receipt Date: 20250324
  Transmission Date: 20250408
  Serious: No
  Sender: ROCHE
  Company Number: US-ROCHE-10000230911

PATIENT
  Age: 12 Year
  Sex: Male

DRUGS (5)
  1. XOLAIR [Suspect]
     Active Substance: OMALIZUMAB
     Indication: Food allergy
     Route: 065
     Dates: start: 20241022
  2. XOLAIR [Suspect]
     Active Substance: OMALIZUMAB
     Indication: Food allergy
  3. XOLAIR [Suspect]
     Active Substance: OMALIZUMAB
     Indication: Food allergy
  4. XOLAIR [Suspect]
     Active Substance: OMALIZUMAB
     Indication: Food allergy
  5. CONCERTA [Concomitant]
     Active Substance: METHYLPHENIDATE HYDROCHLORIDE
     Indication: Attention deficit hyperactivity disorder
     Route: 048

REACTIONS (4)
  - No adverse event [Unknown]
  - Product dose omission issue [Unknown]
  - Needle issue [Unknown]
  - Device issue [Unknown]

NARRATIVE: CASE EVENT DATE: 20250309
